FAERS Safety Report 19283232 (Version 1)
Quarter: 2021Q2

REPORT INFORMATION
  Report Type: Spontaneous
  Country: US (occurrence: US)
  Receive Date: 20210521
  Receipt Date: 20210521
  Transmission Date: 20210717
  Serious: Yes (Disabling)
  Sender: FDA-Public Use
  Company Number: None

PATIENT
  Age: 57 Year
  Sex: Female
  Weight: 102.15 kg

DRUGS (5)
  1. LOSARTAN. [Concomitant]
     Active Substance: LOSARTAN
  2. MYRBETRIQ [Concomitant]
     Active Substance: MIRABEGRON
  3. CALTRATE [Concomitant]
     Active Substance: CALCIUM CARBONATE
  4. ADDYI [Suspect]
     Active Substance: FLIBANSERIN
     Indication: LIBIDO DECREASED
     Dosage: ?          QUANTITY:1 TABLET(S);?
     Route: 048
     Dates: start: 20210520, end: 20210521
  5. MELIXICAM [Concomitant]

REACTIONS (8)
  - Somnolence [None]
  - Swelling face [None]
  - Erythema [None]
  - Lip swelling [None]
  - Confusional state [None]
  - Speech disorder [None]
  - Skin weeping [None]
  - Feeling hot [None]

NARRATIVE: CASE EVENT DATE: 20210520
